FAERS Safety Report 26204410 (Version 1)
Quarter: 2025Q4

REPORT INFORMATION
  Report Type: Spontaneous
  Country: US (occurrence: US)
  Receive Date: 20251226
  Receipt Date: 20251226
  Transmission Date: 20260118
  Serious: No
  Sender: MERCK SHARP & DOHME LLC
  Company Number: US-009507513-2357574

PATIENT
  Age: 54 Year
  Sex: Female

DRUGS (2)
  1. POSACONAZOLE [Suspect]
     Active Substance: POSACONAZOLE
     Indication: Cutaneous blastomycosis
     Route: 048
  2. AMPHOTERICIN B [Concomitant]
     Active Substance: AMPHOTERICIN B
     Route: 042

REACTIONS (1)
  - Product use in unapproved indication [Unknown]
